FAERS Safety Report 20958193 (Version 1)
Quarter: 2022Q2

REPORT INFORMATION
  Report Type: Spontaneous
  Country: US (occurrence: US)
  Receive Date: 20220614
  Receipt Date: 20220614
  Transmission Date: 20220720
  Serious: No
  Sender: FDA-Public Use
  Company Number: US-LUNDBECK-DKLU3048559

PATIENT
  Sex: Female

DRUGS (1)
  1. VYEPTI [Suspect]
     Active Substance: EPTINEZUMAB-JJMR
     Indication: Migraine
     Route: 041

REACTIONS (5)
  - Insomnia [Recovered/Resolved]
  - Migraine [Unknown]
  - Headache [Recovered/Resolved]
  - Ear pain [Recovered/Resolved]
  - Depression [Unknown]
